FAERS Safety Report 12628124 (Version 2)
Quarter: 2016Q4

REPORT INFORMATION
  Report Type: Report from Study
  Country: US (occurrence: US)
  Receive Date: 20160808
  Receipt Date: 20161122
  Transmission Date: 20170207
  Serious: Yes (Other)
  Sender: FDA-Public Use
  Company Number: US-UCBSA-2016029247

PATIENT
  Age: 43 Year
  Sex: Female

DRUGS (3)
  1. CERTOLIZUMAB PEGOL [Suspect]
     Active Substance: CERTOLIZUMAB PEGOL
     Indication: PSORIATIC ARTHROPATHY
     Dosage: STRENGTH-200 MG, 200 MG, EV 2 WEEKS(QOW)
     Route: 058
     Dates: start: 20150819, end: 2016
  2. CERTOLIZUMAB PEGOL [Suspect]
     Active Substance: CERTOLIZUMAB PEGOL
     Dosage: 400 MG, EV 4 WEEKS NDC# 50474-0710-79
     Dates: start: 2016, end: 2016
  3. METHOTREXATE. [Concomitant]
     Active Substance: METHOTREXATE
     Indication: PRODUCT USED FOR UNKNOWN INDICATION
     Dosage: UNK

REACTIONS (2)
  - Ear infection [Not Recovered/Not Resolved]
  - Pharyngitis streptococcal [Unknown]

NARRATIVE: CASE EVENT DATE: 20160613
